FAERS Safety Report 7623557-6 (Version None)
Quarter: 2011Q3

REPORT INFORMATION
  Report Type: 
  Country: None (occurrence: None)
  Receive Date: 20110720
  Receipt Date: 20110705
  Transmission Date: 20111222
  Serious: Yes (Other)
  Sender: FDA-Public Use
  Company Number: AU-SANOFI-AVENTIS-2011SA044507

PATIENT
  Age: 83 Year
  Sex: Male
  Weight: 86 kg

DRUGS (8)
  1. CARVEDILOL [Concomitant]
     Indication: HEART RATE ABNORMAL
     Route: 065
  2. FUROSEMIDE [Concomitant]
     Indication: HYPERTENSION
     Route: 065
  3. ATORVASTATIN [Concomitant]
     Route: 065
  4. DRONEDARONE HCL [Suspect]
     Indication: ATRIAL FIBRILLATION
     Route: 048
     Dates: start: 20110207
  5. DIGOXIN [Concomitant]
     Indication: HEART RATE ABNORMAL
     Route: 065
  6. WARFARIN SODIUM [Concomitant]
     Indication: THROMBOSIS
     Route: 065
  7. TAMSULOSIN HCL [Concomitant]
     Indication: HYPERTENSION
     Route: 065
  8. CANDESARTAN CILEXETIL [Concomitant]
     Route: 065

REACTIONS (1)
  - CARDIAC FAILURE [None]
